FAERS Safety Report 10632643 (Version 2)
Quarter: 2014Q4

REPORT INFORMATION
  Report Type: Spontaneous
  Country: US (occurrence: US)
  Receive Date: 20141205
  Receipt Date: 20141205
  Transmission Date: 20150529
  Serious: No
  Sender: FDA-Public Use
  Company Number: US-BRISTOL-MYERS SQUIBB COMPANY-21171285

PATIENT
  Age: 82 Year
  Sex: Male
  Weight: 86.17 kg

DRUGS (10)
  1. METFORMIN HCL TABS [Concomitant]
     Active Substance: METFORMIN HYDROCHLORIDE
  2. ATENOLOL. [Concomitant]
     Active Substance: ATENOLOL
  3. LIPITOR [Concomitant]
     Active Substance: ATORVASTATIN CALCIUM
  4. BYETTA [Suspect]
     Active Substance: EXENATIDE
     Indication: TYPE 2 DIABETES MELLITUS
     Route: 058
     Dates: start: 201401
  5. ATORVASTATIN [Concomitant]
     Active Substance: ATORVASTATIN
  6. PLAVIX [Concomitant]
     Active Substance: CLOPIDOGREL BISULFATE
  7. BABY ASPIRIN [Concomitant]
     Active Substance: ASPIRIN
  8. CLOPIDOGREL BISULFATE. [Concomitant]
     Active Substance: CLOPIDOGREL BISULFATE
  9. VITAMIN B12 [Concomitant]
     Active Substance: CYANOCOBALAMIN
  10. TAMSULOSIN HCL [Concomitant]
     Active Substance: TAMSULOSIN

REACTIONS (2)
  - Underdose [Unknown]
  - Product quality issue [Unknown]

NARRATIVE: CASE EVENT DATE: 201401
